FAERS Safety Report 5191828-1 (Version None)
Quarter: 2006Q4

REPORT INFORMATION
  Report Type: 
  Country: None (occurrence: None)
  Receive Date: 20061227
  Receipt Date: 20061218
  Transmission Date: 20070319
  Serious: Yes (Other)
  Sender: FDA-Public Use
  Company Number: FR-JNJFOC-20061205574

PATIENT
  Sex: Female

DRUGS (2)
  1. HALDOL [Suspect]
     Indication: PSYCHOTIC DISORDER
     Route: 030
  2. LUTERAN [Concomitant]
     Route: 048

REACTIONS (1)
  - HEPATITIS [None]
